FAERS Safety Report 26019730 (Version 2)
Quarter: 2025Q4

REPORT INFORMATION
  Report Type: Spontaneous
  Country: GB (occurrence: GB)
  Receive Date: 20251110
  Receipt Date: 20251126
  Transmission Date: 20260118
  Serious: Yes (Hospitalization, Other)
  Sender: PFIZER
  Company Number: UA-ASTRAZENECA-202510GLO031596UA

PATIENT
  Age: 72 Year
  Sex: Male

DRUGS (5)
  1. CISPLATIN [Suspect]
     Active Substance: CISPLATIN
     Dosage: 113 MG, CYCLIC (DAY 1 OF CYCLE), INFUSION
     Route: 042
     Dates: start: 20251023
  2. GEMCITABINE HYDROCHLORIDE [Suspect]
     Active Substance: GEMCITABINE HYDROCHLORIDE
     Dosage: 1710 MG, CYCLIC (DAY 1 OF CYCLE)
     Route: 042
     Dates: start: 20251023
  3. DURVALUMAB [Suspect]
     Active Substance: DURVALUMAB
     Dosage: 1500 MG, CYCLIC (DAY 1 OF CYCLE), INFUSION
     Route: 042
     Dates: start: 20251023
  4. DURVALUMAB [Suspect]
     Active Substance: DURVALUMAB
     Dosage: UNK
  5. TREMELIMUMAB [Suspect]
     Active Substance: TREMELIMUMAB
     Dosage: 75 MG, CYCLIC (DAY 1 OF CYCLE), INFUSION
     Route: 042
     Dates: start: 20251023

REACTIONS (7)
  - Urine odour abnormal [Unknown]
  - Fatigue [Unknown]
  - Pyrexia [Not Recovered/Not Resolved]
  - Streptococcal bacteraemia [Unknown]
  - Escherichia bacteraemia [Unknown]
  - Oedema peripheral [Unknown]
  - Culture urine positive [Unknown]

NARRATIVE: CASE EVENT DATE: 20250101
